FAERS Safety Report 24544802 (Version 2)
Quarter: 2025Q3

REPORT INFORMATION
  Report Type: Spontaneous
  Country: JP (occurrence: JP)
  Receive Date: 20241024
  Receipt Date: 20250810
  Transmission Date: 20251021
  Serious: Yes (Other)
  Sender: ALEXION PHARMACEUTICALS
  Company Number: JP-ASTRAZENECA-240111105_064320_P_1

PATIENT
  Age: 81 Year
  Sex: Male

DRUGS (3)
  1. ANDEXXA [Suspect]
     Active Substance: ANDEXANET ALFA
     Indication: Haemorrhagic infarction
  2. ANDEXXA [Suspect]
     Active Substance: ANDEXANET ALFA
     Indication: Cerebellar haemorrhage
  3. APIXABAN [Concomitant]
     Active Substance: APIXABAN
     Indication: Atrial fibrillation

REACTIONS (1)
  - Ischaemic cerebral infarction [Unknown]
